FAERS Safety Report 17742490 (Version 1)
Quarter: 2020Q2

REPORT INFORMATION
  Report Type: Spontaneous
  Country: GB (occurrence: GB)
  Receive Date: 20200505
  Receipt Date: 20200505
  Transmission Date: 20200714
  Serious: Yes (Other)
  Sender: FDA-Public Use
  Company Number: GB-ALKEM LABORATORIES LIMITED-GB-ALKEM-2020-01424

PATIENT
  Sex: Female

DRUGS (1)
  1. QUETIAPINE FUMARATE. [Suspect]
     Active Substance: QUETIAPINE FUMARATE
     Indication: INSOMNIA
     Dosage: 200 MILLIGRAM
     Route: 065

REACTIONS (6)
  - Hepatic pain [Unknown]
  - Abnormal weight gain [Recovered/Resolved]
  - Liver function test abnormal [Recovered/Resolved]
  - Gastrointestinal disorder [Unknown]
  - Dyskinesia [Unknown]
  - Constipation [Unknown]
